FAERS Safety Report 20900278 (Version 1)
Quarter: 2022Q2

REPORT INFORMATION
  Report Type: Spontaneous
  Country: US (occurrence: None)
  Receive Date: 20220531
  Receipt Date: 20220531
  Transmission Date: 20220720
  Serious: Yes (Disabling)
  Sender: FDA-Public Use
  Company Number: None

PATIENT
  Age: 67 Year
  Sex: Female
  Weight: 89.55 kg

DRUGS (11)
  1. VITAMIN D2 [Suspect]
     Active Substance: ERGOCALCIFEROL
     Indication: Vitamin D decreased
     Dosage: OTHER QUANTITY : 1 CAPSULE(S);?OTHER FREQUENCY : ONCE A WEEK;?
     Route: 048
  2. VALSARTAN [Concomitant]
     Active Substance: VALSARTAN
  3. LABETALOL [Concomitant]
     Active Substance: LABETALOL\LABETALOL HYDROCHLORIDE
  4. ATORVASTATIN [Concomitant]
     Active Substance: ATORVASTATIN
  5. VITAMIN D2 [Concomitant]
     Active Substance: ERGOCALCIFEROL
  6. OXYCODONE [Concomitant]
     Active Substance: OXYCODONE
  7. VITAMIN D3 [Concomitant]
     Active Substance: CHOLECALCIFEROL
  8. flexirl [Concomitant]
  9. TRAZODONE [Concomitant]
     Active Substance: TRAZODONE HYDROCHLORIDE
  10. BENZTROPINE [Concomitant]
     Active Substance: BENZTROPINE
  11. otc sinus medication [Concomitant]

REACTIONS (7)
  - Dysphonia [None]
  - Wheezing [None]
  - Dyspnoea [None]
  - Chest discomfort [None]
  - Throat tightness [None]
  - Skin exfoliation [None]
  - Erythema [None]

NARRATIVE: CASE EVENT DATE: 20220301
